FAERS Safety Report 8199569-3 (Version None)
Quarter: 2012Q1

REPORT INFORMATION
  Report Type: 
  Country: None (occurrence: None)
  Receive Date: 20120310
  Receipt Date: 20120227
  Transmission Date: 20120608
  Serious: Yes (Other)
  Sender: FDA-Public Use
  Company Number: ES-BRISTOL-MYERS SQUIBB COMPANY-16422438

PATIENT
  Age: 57 Year
  Sex: Male

DRUGS (1)
  1. CYCLOPHOSPHAMIDE [Suspect]
     Dosage: ALSO RECEIVED 750 MG, 50 MG/DAY
     Route: 040

REACTIONS (1)
  - HEPATOTOXICITY [None]
